FAERS Safety Report 9565119 (Version 1)
Quarter: 2013Q3

REPORT INFORMATION
  Report Type: Spontaneous
  Country: CA (occurrence: CA)
  Receive Date: 20130930
  Receipt Date: 20130930
  Transmission Date: 20140515
  Serious: Yes (Death, Life-Threatening, Other)
  Sender: FDA-Public Use
  Company Number: CA-ROXANE LABORATORIES, INC.-2013-RO-01582RO

PATIENT
  Age: 31 Year
  Sex: Male

DRUGS (3)
  1. MORPHINE [Suspect]
  2. ALCOHOL [Suspect]
  3. COCAINE [Suspect]

REACTIONS (5)
  - Death [Fatal]
  - Brain injury [Unknown]
  - Cardiac arrest [Recovered/Resolved]
  - Myoclonus [Unknown]
  - Muscle twitching [Unknown]
